FAERS Safety Report 9161887 (Version 1)
Quarter: 2013Q1

REPORT INFORMATION
  Report Type: Spontaneous
  Country: GB (occurrence: None)
  Receive Date: 20130221
  Receipt Date: 20130221
  Transmission Date: 20140127
  Serious: Yes (Hospitalization, Other)
  Sender: FDA-Public Use
  Company Number: 1595749

PATIENT
  Age: 50 Year
  Sex: Female
  Weight: 50.8 kg

DRUGS (3)
  1. CARBOPLATIN [Suspect]
     Indication: PRODUCT USED FOR UNKNOWN INDICATION
     Route: 042
     Dates: start: 20121130
  2. BEVACIZUMAB [Suspect]
     Indication: OVARIAN CANCER
     Dates: start: 20121130
  3. PACLITAXEL [Suspect]
     Indication: PRODUCT USED FOR UNKNOWN INDICATION
     Route: 042
     Dates: start: 20121130

REACTIONS (6)
  - Abdominal pain [None]
  - Constipation [None]
  - Staphylococcus test positive [None]
  - Blood culture positive [None]
  - Device related infection [None]
  - Pyrexia [None]
